FAERS Safety Report 10898816 (Version 3)
Quarter: 2015Q2

REPORT INFORMATION
  Report Type: Report from Study
  Country: US (occurrence: US)
  Receive Date: 20150309
  Receipt Date: 20150420
  Transmission Date: 20150821
  Serious: Yes (Hospitalization, Other)
  Sender: FDA-Public Use
  Company Number: US-GILEAD-2015-0141052

PATIENT
  Age: 58 Year
  Sex: Female

DRUGS (3)
  1. AMBRISENTAN [Suspect]
     Active Substance: AMBRISENTAN
     Indication: PRODUCT USED FOR UNKNOWN INDICATION
     Dosage: 10 MG, QD
     Route: 065
     Dates: start: 20130130
  2. ADCIRCA [Concomitant]
     Active Substance: TADALAFIL
  3. ORENITRAM [Concomitant]
     Active Substance: TREPROSTINIL

REACTIONS (5)
  - Gastrointestinal haemorrhage [Unknown]
  - Platelet disorder [Unknown]
  - Syncope [Unknown]
  - Haemorrhage [Unknown]
  - Back pain [Unknown]
